FAERS Safety Report 11901870 (Version 1)
Quarter: 2016Q1

REPORT INFORMATION
  Report Type: Report from Study
  Country: CA (occurrence: CA)
  Receive Date: 20160108
  Receipt Date: 20160108
  Transmission Date: 20160526
  Serious: Yes (Hospitalization, Other)
  Sender: FDA-Public Use
  Company Number: CA-TEVA-623408ACC

PATIENT
  Age: 35 Year
  Sex: Female

DRUGS (2)
  1. ALERTEC [Suspect]
     Active Substance: MODAFINIL
  2. GILENYA [Suspect]
     Active Substance: FINGOLIMOD HYDROCHLORIDE
     Indication: RELAPSING-REMITTING MULTIPLE SCLEROSIS
     Dosage: .5 MILLIGRAM DAILY;
     Route: 048

REACTIONS (7)
  - Dizziness [Recovered/Resolved]
  - Flushing [Recovered/Resolved]
  - Fungal infection [Recovered/Resolved]
  - Feeling hot [Recovered/Resolved]
  - Heart rate decreased [Recovered/Resolved]
  - Malaise [Recovered/Resolved]
  - Renal pain [Recovered/Resolved]
